FAERS Safety Report 5753222-1 (Version None)
Quarter: 2008Q2

REPORT INFORMATION
  Report Type: 
  Country: None (occurrence: None)
  Receive Date: 20080530
  Receipt Date: 20070710
  Transmission Date: 20081010
  Serious: No
  Sender: FDA-Public Use
  Company Number: US-BAUSCH-2007BL002315

PATIENT
  Age: 33 Year
  Sex: Female

DRUGS (1)
  1. GENTAMICIN SULFATE [Suspect]
     Route: 047
     Dates: start: 20070709, end: 20070709

REACTIONS (5)
  - ERYTHEMA OF EYELID [None]
  - EYE IRRITATION [None]
  - EYELID OEDEMA [None]
  - LACRIMATION INCREASED [None]
  - MEDICATION ERROR [None]
